FAERS Safety Report 8370918-6 (Version None)
Quarter: 2012Q2

REPORT INFORMATION
  Report Type: 
  Country: None (occurrence: None)
  Receive Date: 20120518
  Receipt Date: 20120106
  Transmission Date: 20120825
  Serious: No
  Sender: FDA-Public Use
  Company Number: US-BAUSCH-2012BL000155

PATIENT
  Age: 78 Year
  Sex: Male

DRUGS (3)
  1. IPRATROPIUM BROMIDE [Suspect]
     Indication: UPPER-AIRWAY COUGH SYNDROME
     Route: 045
     Dates: start: 20110801, end: 20110901
  2. IPRATROPIUM BROMIDE [Suspect]
     Route: 045
     Dates: start: 20120101, end: 20120106
  3. NASAL SALINE [Concomitant]

REACTIONS (3)
  - EPISTAXIS [None]
  - EYE PAIN [None]
  - RHINALGIA [None]
